FAERS Safety Report 6739168-0 (Version None)
Quarter: 2010Q2

REPORT INFORMATION
  Report Type: 
  Country: None (occurrence: None)
  Receive Date: 20100525
  Receipt Date: 20100520
  Transmission Date: 20101027
  Serious: Yes (Other)
  Sender: FDA-Public Use
  Company Number: US-TEVA-235340USA

PATIENT
  Sex: Male

DRUGS (17)
  1. FOSINOPRIL SODIUM TABLET [Suspect]
     Route: 048
  2. CARVEDILOL [Suspect]
     Route: 048
  3. RANITIDINE HYDROCHLORIDE [Suspect]
     Indication: PROPHYLAXIS
     Route: 042
  4. ONDANSETRON [Suspect]
     Indication: PROPHYLAXIS OF NAUSEA AND VOMITING
     Route: 042
  5. ACETYLSALICYLIC ACID [Suspect]
     Route: 048
  6. CARBOPLATIN [Suspect]
     Indication: CHEMOTHERAPY
     Route: 042
     Dates: start: 20100414
  7. TOLTERODINE [Suspect]
     Route: 048
  8. DEXAMETHASONE [Suspect]
     Indication: PROPHYLAXIS OF NAUSEA AND VOMITING
     Route: 042
  9. DIPHENHYDRAMINE [Suspect]
     Indication: PROPHYLAXIS
     Route: 042
  10. HYDROCHLOROTHIAZIDE [Suspect]
     Route: 048
  11. MEGESTROL ACETATE [Suspect]
     Indication: APPETITE DISORDER
     Route: 048
  12. PROMETHAZINE [Suspect]
     Indication: NAUSEA
     Route: 048
  13. CLOPIDOGREL [Suspect]
     Route: 048
  14. SIMVASTATIN [Suspect]
     Dosage: AT NIGHT
     Route: 048
  15. PACLITAXEL [Suspect]
     Indication: CHEMOTHERAPY
     Route: 042
     Dates: start: 20100414
  16. ERGOCALCIFEROL [Suspect]
     Indication: PROPHYLAXIS OF NAUSEA AND VOMITING
  17. OMEPRAZOLE [Suspect]
     Route: 048

REACTIONS (25)
  - ABASIA [None]
  - ASTHENIA [None]
  - ATELECTASIS [None]
  - BLOOD CHLORIDE DECREASED [None]
  - BLOOD GLUCOSE INCREASED [None]
  - BLOOD POTASSIUM DECREASED [None]
  - BLOOD UREA INCREASED [None]
  - DECREASED APPETITE [None]
  - DEHYDRATION [None]
  - DIARRHOEA [None]
  - FAILURE TO THRIVE [None]
  - HAEMOGLOBIN DECREASED [None]
  - HYPOCALCAEMIA [None]
  - HYPOMAGNESAEMIA [None]
  - HYPONATRAEMIA [None]
  - HYPOPHAGIA [None]
  - LISTLESS [None]
  - MONOCYTE COUNT DECREASED [None]
  - NEUTROPENIA [None]
  - NEUTROPHIL COUNT DECREASED [None]
  - PNEUMONIA [None]
  - PROTHROMBIN TIME PROLONGED [None]
  - RED BLOOD CELL COUNT DECREASED [None]
  - TACHYCARDIA [None]
  - WHITE BLOOD CELL COUNT DECREASED [None]
